FAERS Safety Report 6068169-3 (Version None)
Quarter: 2009Q1

REPORT INFORMATION
  Report Type: 
  Country: None (occurrence: None)
  Receive Date: 20090206
  Receipt Date: 20090128
  Transmission Date: 20090719
  Serious: No
  Sender: FDA-Public Use
  Company Number: GB-ASTRAZENECA-2009GB00243

PATIENT
  Age: 543 Month
  Sex: Female
  Weight: 55 kg

DRUGS (4)
  1. ZOLADEX [Suspect]
     Indication: BREAST CANCER
     Route: 058
     Dates: start: 20070601, end: 20071201
  2. ZOLADEX [Suspect]
     Route: 058
     Dates: start: 20081101
  3. ARIMIDEX [Suspect]
     Indication: BREAST CANCER
     Route: 048
     Dates: start: 20070601
  4. ACICLOVIR [Concomitant]
     Indication: HERPES VIRUS INFECTION
     Route: 048
     Dates: start: 20070416, end: 20070423

REACTIONS (6)
  - ABDOMINAL DISTENSION [None]
  - CONSTIPATION [None]
  - HEADACHE [None]
  - MENSTRUAL DISORDER [None]
  - QUALITY OF LIFE DECREASED [None]
  - WEIGHT INCREASED [None]
